FAERS Safety Report 19105246 (Version 1)
Quarter: 2021Q2

REPORT INFORMATION
  Report Type: Spontaneous
  Country: US (occurrence: US)
  Receive Date: 20210407
  Receipt Date: 20210407
  Transmission Date: 20210717
  Serious: Yes (Other)
  Sender: FDA-Public Use
  Company Number: PT-SUNOVION-2021SUN001203

PATIENT
  Age: 49 Year
  Sex: Female

DRUGS (9)
  1. XCOPRI [Suspect]
     Active Substance: CENOBAMATE
     Dosage: 150 MG, QD
     Route: 048
     Dates: start: 2020, end: 2020
  2. XCOPRI [Suspect]
     Active Substance: CENOBAMATE
     Dosage: 200 MG
     Route: 048
     Dates: start: 20200823, end: 20200824
  3. XCOPRI [Suspect]
     Active Substance: CENOBAMATE
     Dosage: 100 MG, QD
     Route: 048
     Dates: start: 20200826, end: 20200909
  4. DEPAKOTE [Suspect]
     Active Substance: DIVALPROEX SODIUM
     Indication: SEIZURE
     Dosage: UNK
     Route: 065
     Dates: start: 20200614, end: 2020
  5. TEGRETOL [Suspect]
     Active Substance: CARBAMAZEPINE
     Indication: SEIZURE
     Route: 065
  6. XCOPRI [Suspect]
     Active Substance: CENOBAMATE
     Indication: SEIZURE
     Dosage: 12.5 MG, QD
     Route: 048
     Dates: start: 20200614, end: 2020
  7. APTIOM [Suspect]
     Active Substance: ESLICARBAZEPINE ACETATE
     Indication: PRODUCT USED FOR UNKNOWN INDICATION
     Dosage: UNK
     Route: 065
  8. EPIDIOLEX [Suspect]
     Active Substance: CANNABIDIOL
     Indication: PRODUCT USED FOR UNKNOWN INDICATION
     Route: 065
  9. XCOPRI [Suspect]
     Active Substance: CENOBAMATE
     Dosage: 150 MG, QD
     Route: 048
     Dates: start: 20200919

REACTIONS (11)
  - Somnolence [Recovered/Resolved]
  - Dysphagia [Recovered/Resolved]
  - Dizziness [Recovered/Resolved]
  - Neurological symptom [Recovered/Resolved]
  - Choking [Recovered/Resolved]
  - Fall [Recovered/Resolved]
  - Dysarthria [Recovered/Resolved]
  - Cough [Recovered/Resolved]
  - Slow speech [Recovered/Resolved]
  - Vomiting [Recovered/Resolved]
  - Gait disturbance [Recovered/Resolved]

NARRATIVE: CASE EVENT DATE: 20200823
